FAERS Safety Report 9230077 (Version 1)
Quarter: 2013Q1

REPORT INFORMATION
  Report Type: Spontaneous
  Country: US (occurrence: None)
  Receive Date: 20121023
  Receipt Date: 20121023
  Transmission Date: 20140127
  Serious: Yes (Hospitalization)
  Sender: FDA-Public Use
  Company Number: 2012AL000065

PATIENT
  Age: 62 Year
  Sex: Female
  Weight: 107.7 kg

DRUGS (2)
  1. FOLOTYN [Suspect]
     Indication: COLON CANCER METASTATIC
     Route: 042
     Dates: start: 20111101, end: 20120416
  2. FLUOROURACIL (FLUOROURACIL) [Suspect]
     Indication: COLON CANCER METASTATIC
     Dates: start: 20111102, end: 20120417

REACTIONS (1)
  - Sepsis [None]
